FAERS Safety Report 14165573 (Version 2)
Quarter: 2017Q4

REPORT INFORMATION
  Report Type: Spontaneous
  Country: JP (occurrence: JP)
  Receive Date: 20171107
  Receipt Date: 20171215
  Transmission Date: 20180321
  Serious: Yes (Hospitalization)
  Sender: FDA-Public Use
  Company Number: JP-PFIZER INC-2017370325

PATIENT
  Age: 34 Year
  Sex: Female

DRUGS (6)
  1. RISPERIDONE. [Suspect]
     Active Substance: RISPERIDONE
     Indication: ANXIETY
  2. SERENACE [Suspect]
     Active Substance: HALOPERIDOL
     Indication: ANXIETY
  3. TANDOSPIRONE CITRATE [Concomitant]
     Active Substance: TANDOSPIRONE CITRATE
     Indication: AFFECT LABILITY
     Dosage: 20 MG, 3X/DAY
     Route: 048
     Dates: start: 20170816, end: 20171029
  4. RISPERIDONE. [Suspect]
     Active Substance: RISPERIDONE
     Indication: RESTLESSNESS
     Dosage: 1 MG, 1X/DAY
     Route: 048
     Dates: start: 20170817, end: 20170817
  5. SERENACE [Suspect]
     Active Substance: HALOPERIDOL
     Indication: RESTLESSNESS
     Dosage: 2.5 MG, 1X/DAY
     Route: 030
     Dates: start: 20170818, end: 20170818
  6. EFFEXOR [Suspect]
     Active Substance: VENLAFAXINE HYDROCHLORIDE
     Indication: DEPRESSION
     Dosage: 37.5 MG, DAILY
     Route: 048
     Dates: start: 20170817, end: 20170818

REACTIONS (7)
  - Decreased appetite [Recovered/Resolved]
  - Anxiety [Unknown]
  - Tremor [Recovered/Resolved]
  - Dysphagia [Recovered/Resolved]
  - Musculoskeletal stiffness [Recovered/Resolved]
  - Stupor [Recovered/Resolved]
  - Salivary hypersecretion [Recovered/Resolved]

NARRATIVE: CASE EVENT DATE: 201708
